FAERS Safety Report 7540303-5 (Version None)
Quarter: 2011Q2

REPORT INFORMATION
  Report Type: 
  Country: None (occurrence: None)
  Receive Date: 20110610
  Receipt Date: 20110601
  Transmission Date: 20111010
  Serious: Yes (Hospitalization, Other)
  Sender: FDA-Public Use
  Company Number: PHHO2010JP07419

PATIENT
  Sex: Male
  Weight: 56 kg

DRUGS (15)
  1. ALISKIREN [Suspect]
     Dosage: UNK
     Route: 048
     Dates: start: 20100323, end: 20100513
  2. ALISKIREN [Suspect]
     Dosage: UNK
     Route: 048
     Dates: start: 20100608
  3. ENALAPRIL MALEATE [Suspect]
     Dosage: UNK
     Route: 048
     Dates: start: 20100608
  4. CARVEDILOL [Concomitant]
     Indication: CARDIAC FAILURE CHRONIC
  5. GLORIAMIN [Concomitant]
  6. ENALAPRIL MALEATE [Concomitant]
  7. ENALAPRIL MALEATE [Suspect]
     Indication: CARDIAC FAILURE
     Dosage: 10 MG,
     Route: 048
     Dates: start: 20100210, end: 20100215
  8. ALISKIREN [Suspect]
     Dosage: UNK
     Dates: start: 20100514, end: 20100607
  9. ALOSITOL [Concomitant]
     Indication: HYPERURICAEMIA
  10. ASPIRIN [Concomitant]
     Indication: CEREBRAL INFARCTION
     Dosage: UNK
     Route: 048
     Dates: start: 20061217, end: 20100506
  11. WARFARIN POTASSIUM [Concomitant]
     Indication: ATRIAL FIBRILLATION
  12. ALISKIREN [Suspect]
     Indication: CARDIAC FAILURE
     Dosage: 150 MG
     Route: 048
     Dates: start: 20100302, end: 20100322
  13. AMARYL [Concomitant]
     Indication: DIABETES MELLITUS
  14. ENALAPRIL MALEATE [Suspect]
     Dosage: 20 MG
     Route: 048
     Dates: start: 20100216, end: 20100322
  15. AMIODARONE HYDROCHLORIDE [Concomitant]
     Indication: VENTRICULAR EXTRASYSTOLES

REACTIONS (21)
  - MALAISE [None]
  - WOUND COMPLICATION [None]
  - PLEURAL EFFUSION [None]
  - RENAL FAILURE CHRONIC [None]
  - CARDIAC FAILURE CHRONIC [None]
  - OESOPHAGEAL NEOPLASM [None]
  - OESOPHAGEAL ULCER [None]
  - ATRIOVENTRICULAR BLOCK SECOND DEGREE [None]
  - BRADYCARDIA [None]
  - DECREASED APPETITE [None]
  - SICK SINUS SYNDROME [None]
  - GASTRIC ULCER [None]
  - WEIGHT INCREASED [None]
  - OEDEMA PERIPHERAL [None]
  - OEDEMA [None]
  - PERICARDITIS [None]
  - GASTRIC NEOPLASM [None]
  - FACE OEDEMA [None]
  - NAUSEA [None]
  - VOMITING [None]
  - ATRIOVENTRICULAR BLOCK [None]
